FAERS Safety Report 4302789-9 (Version None)
Quarter: 2004Q1

REPORT INFORMATION
  Report Type: 
  Country: None (occurrence: None)
  Receive Date: 20040220
  Receipt Date: 20040206
  Transmission Date: 20041129
  Serious: Yes (Other)
  Sender: FDA-Public Use
  Company Number: 2004-BP-01053BP

PATIENT
  Sex: 0

DRUGS (2)
  1. MIRAPEX [Suspect]
     Indication: PARKINSON'S DISEASE
     Dosage: PO
     Route: 048
  2. REQUIP [Suspect]

REACTIONS (1)
  - OBSESSIVE-COMPULSIVE PERSONALITY DISORDER [None]
